FAERS Safety Report 14555903 (Version 1)
Quarter: 2018Q1

REPORT INFORMATION
  Report Type: Report from Study
  Country: US (occurrence: US)
  Receive Date: 20180221
  Receipt Date: 20180221
  Transmission Date: 20180509
  Serious: Yes (Other)
  Sender: FDA-Public Use
  Company Number: US-CIPLA LTD.-2018US06027

PATIENT

DRUGS (3)
  1. PREDNISONE. [Concomitant]
     Active Substance: PREDNISONE
     Indication: PROPHYLAXIS
     Dosage: 20 MG, UNK
     Route: 048
  2. ANASTROZOLE. [Suspect]
     Active Substance: ANASTROZOLE
     Indication: OESTROGEN RECEPTOR POSITIVE BREAST CANCER
     Dosage: 1 MG, DAILY, EVERY 28 DAY CYCLE
     Route: 048
  3. MK-2206 [Suspect]
     Active Substance: INVESTIGATIONAL PRODUCT
     Indication: OESTROGEN RECEPTOR POSITIVE BREAST CANCER
     Dosage: 150 MG, ON DAYS 2, 9, 16, AND 23, EVERY 28 DAY CYCLE
     Route: 048

REACTIONS (1)
  - Pruritus [Unknown]
